FAERS Safety Report 8340563 (Version 4)
Quarter: 2012Q4

REPORT INFORMATION
  Report Type: Report from Study
  Country: BR (occurrence: BR)
  Receive Date: 20120117
  Receipt Date: 20121009
  Transmission Date: 20130627
  Serious: Yes (Hospitalization, Other)
  Sender: FDA-Public Use
  Company Number: BR-ROCHE-1030183

PATIENT
  Age: 60 None
  Sex: Female
  Weight: 78 kg

DRUGS (6)
  1. MABTHERA [Suspect]
     Indication: RHEUMATOID ARTHRITIS
     Route: 042
     Dates: start: 20100831
  2. RIVOTRIL [Concomitant]
  3. FRONTAL [Concomitant]
     Indication: PAIN
  4. TRAMAL [Concomitant]
     Indication: PAIN
  5. ULTRACET [Concomitant]
     Indication: PAIN
  6. LOSARTAN [Concomitant]

REACTIONS (19)
  - Nausea [Unknown]
  - Abdominal hernia [Recovered/Resolved]
  - Hypokalaemia [Recovered/Resolved]
  - Diarrhoea [Unknown]
  - Tooth injury [Recovered/Resolved]
  - Vomiting [Unknown]
  - Gastrooesophageal reflux disease [Recovered/Resolved]
  - Skin cancer [Recovered/Resolved]
  - Drug ineffective [Unknown]
  - Weight decreased [Unknown]
  - Feeding disorder [Unknown]
  - Weight increased [Recovered/Resolved]
  - Oedema peripheral [Recovered/Resolved]
  - Joint swelling [Recovered/Resolved]
  - Gait disturbance [Recovered/Resolved]
  - Dizziness [Recovered/Resolved]
  - Sensation of heaviness [Recovered/Resolved]
  - Pyrexia [Recovered/Resolved]
  - Ulcer [Recovered/Resolved]
